FAERS Safety Report 22187062 (Version 1)
Quarter: 2023Q2

REPORT INFORMATION
  Report Type: Spontaneous
  Country: CN (occurrence: CN)
  Receive Date: 20230407
  Receipt Date: 20230407
  Transmission Date: 20230721
  Serious: Yes (Other)
  Sender: FDA-Public Use
  Company Number: ALC2023CN001693

PATIENT
  Age: 77 Year
  Sex: Female

DRUGS (1)
  1. PROPARACAINE HYDROCHLORIDE [Suspect]
     Active Substance: PROPARACAINE HYDROCHLORIDE
     Indication: Anaesthesia
     Dosage: 1 DROP QD
     Route: 065
     Dates: start: 20230324, end: 20230324

REACTIONS (1)
  - Corneal epithelium defect [Recovered/Resolved]

NARRATIVE: CASE EVENT DATE: 20230325
